FAERS Safety Report 5838650-8 (Version None)
Quarter: 2008Q3

REPORT INFORMATION
  Report Type: 
  Country: None (occurrence: None)
  Receive Date: 20080808
  Receipt Date: 20080730
  Transmission Date: 20090109
  Serious: Yes (Other)
  Sender: FDA-Public Use
  Company Number: GB-ABBOTT-08P-167-0468734-00

PATIENT

DRUGS (2)
  1. ZEMPLAR [Suspect]
     Indication: HYPERPARATHYROIDISM SECONDARY
     Route: 042
  2. PHOSPHATE BINDERS [Concomitant]
     Indication: BLOOD PHOSPHORUS ABNORMAL

REACTIONS (1)
  - HYPOPHOSPHATAEMIA [None]
